FAERS Safety Report 18033692 (Version 1)
Quarter: 2020Q3

REPORT INFORMATION
  Report Type: Report from Study
  Country: ES (occurrence: ES)
  Receive Date: 20200716
  Receipt Date: 20200716
  Transmission Date: 20201103
  Serious: Yes (Other)
  Sender: FDA-Public Use
  Company Number: ES-RECRO GAINESVILLE LLC-REPH-2020-000006

PATIENT
  Age: 74 Year
  Sex: Male

DRUGS (15)
  1. LOPINAVIR/RITONAVIR [Concomitant]
     Active Substance: LOPINAVIR\RITONAVIR
     Indication: COVID-19
  2. VALPROATE [Concomitant]
     Active Substance: VALPROIC ACID
     Indication: PARTIAL SEIZURES
     Dosage: PROGRESSIVELY REACHING A TOTAL OF 1000 MG
     Route: 065
     Dates: start: 20200415
  3. LOPINAVIR/RITONAVIR [Concomitant]
     Active Substance: LOPINAVIR\RITONAVIR
     Indication: PNEUMONIA
     Dosage: 400?100 MILLIGRAM, Q12H
     Route: 065
     Dates: start: 20200401
  4. CARFILZOMIB W/DEXAMETHASONE [Concomitant]
     Indication: PLASMA CELL MYELOMA
     Dosage: UNK UNK, Q3WK
     Route: 042
     Dates: start: 2019
  5. VERAPAMIL HYDROCHLORIDE SUSTAINED RELEASE [Suspect]
     Active Substance: VERAPAMIL HYDROCHLORIDE
     Indication: STATUS EPILEPTICUS
     Dosage: 2.5 MILLIGRAM
     Route: 065
     Dates: start: 20200415
  6. HYDROXYCHLOROQUINE [Concomitant]
     Active Substance: HYDROXYCHLOROQUINE
     Indication: PNEUMONIA
     Dosage: 200 MILLIGRAM, Q12H
     Route: 065
     Dates: start: 20200401
  7. CEFTRIAXONE. [Concomitant]
     Active Substance: CEFTRIAXONE
     Indication: COVID-19
  8. DEXAMETHASONE. [Concomitant]
     Active Substance: DEXAMETHASONE
     Indication: PNEUMONIA
     Dosage: 20 MILLIGRAM, Q12H
     Route: 065
     Dates: start: 20200401
  9. DIAZEPAM. [Concomitant]
     Active Substance: DIAZEPAM
     Indication: PARTIAL SEIZURES
     Dosage: PROGRESSIVELY REACHING A TOTAL OF 20 MG
     Route: 065
     Dates: start: 20200415
  10. HYDROXYCHLOROQUINE [Concomitant]
     Active Substance: HYDROXYCHLOROQUINE
     Indication: COVID-19
  11. CEFTRIAXONE. [Concomitant]
     Active Substance: CEFTRIAXONE
     Indication: PNEUMONIA
     Dosage: 2 GRAM, QD
     Route: 065
     Dates: start: 20200401
  12. ENOXAPARIN [Concomitant]
     Active Substance: ENOXAPARIN
     Indication: PROPHYLAXIS
     Dosage: 40 MILLIGRAM, QD
     Route: 065
     Dates: start: 20200401
  13. LEVETIRACETAM. [Concomitant]
     Active Substance: LEVETIRACETAM
     Indication: PARTIAL SEIZURES
     Dosage: PROGRESSIVELY REACHING A TOTAL OF 1500MG
     Route: 065
     Dates: start: 20200415
  14. LACOSAMIDE. [Concomitant]
     Active Substance: LACOSAMIDE
     Indication: PARTIAL SEIZURES
     Dosage: PROGRESSIVELY REACHING A TOTAL OF 200 MG
     Route: 065
     Dates: start: 20200415
  15. DEXAMETHASONE. [Concomitant]
     Active Substance: DEXAMETHASONE
     Indication: COVID-19

REACTIONS (3)
  - Off label use [Recovered/Resolved]
  - Paralysis [Recovered/Resolved]
  - Blindness cortical [Recovered/Resolved]
